FAERS Safety Report 12889880 (Version 4)
Quarter: 2016Q4

REPORT INFORMATION
  Report Type: Report from Study
  Country: MX (occurrence: MX)
  Receive Date: 20161027
  Receipt Date: 20161128
  Transmission Date: 20170207
  Serious: Yes (Hospitalization, Other)
  Sender: FDA-Public Use
  Company Number: PHHY2016MX145985

PATIENT
  Age: 73 Year
  Sex: Female
  Weight: 54 kg

DRUGS (4)
  1. TOBI [Suspect]
     Active Substance: TOBRAMYCIN
     Indication: HORMONE LEVEL ABNORMAL
     Dosage: 2 DF, QD
     Route: 055
     Dates: start: 201607
  2. TOBI [Suspect]
     Active Substance: TOBRAMYCIN
     Indication: BACTERIAL INFECTION
  3. ULTIBRO BREEZHALER [Suspect]
     Active Substance: GLYCOPYRRONIUM\INDACATEROL
     Indication: PRODUCT USED FOR UNKNOWN INDICATION
     Dosage: 1 DF, QD
     Route: 065
  4. TOBI [Suspect]
     Active Substance: TOBRAMYCIN
     Indication: LUNG INFECTION

REACTIONS (10)
  - Respiratory tract infection [Unknown]
  - Epistaxis [Not Recovered/Not Resolved]
  - Dry throat [Unknown]
  - Asthenia [Unknown]
  - Nasal dryness [Not Recovered/Not Resolved]
  - Dry skin [Unknown]
  - General physical health deterioration [Unknown]
  - Dilated pores [Unknown]
  - Drug intolerance [Unknown]
  - Product use issue [Not Recovered/Not Resolved]

NARRATIVE: CASE EVENT DATE: 201607
